FAERS Safety Report 22274471 (Version 1)
Quarter: 2023Q2

REPORT INFORMATION
  Report Type: Spontaneous
  Country: DE (occurrence: DE)
  Receive Date: 20230502
  Receipt Date: 20230502
  Transmission Date: 20230721
  Serious: Yes (Other)
  Sender: FDA-Public Use
  Company Number: DE-VIIV HEALTHCARE LIMITED-DE2023EME061080

PATIENT

DRUGS (6)
  1. DOLUTEGRAVIR SODIUM\LAMIVUDINE [Suspect]
     Active Substance: DOLUTEGRAVIR SODIUM\LAMIVUDINE
     Indication: HIV infection CDC category A
     Dosage: UNK
  2. VOCABRIA [Suspect]
     Active Substance: CABOTEGRAVIR SODIUM
     Indication: HIV infection CDC category A
     Dosage: UNK
     Dates: start: 20230322
  3. RILPIVIRINE [Suspect]
     Active Substance: RILPIVIRINE
     Indication: HIV infection CDC category A
     Dosage: UNK
     Dates: start: 20230322
  4. PANTOPRAZOLE [Concomitant]
     Active Substance: PANTOPRAZOLE
     Indication: Dyspepsia
     Dosage: UNK, QD
  5. EMTRICITABINE\RILPIVIRINE HYDROCHLORIDE\TENOFOVIR ALAFENAMIDE FUMARATE [Concomitant]
     Active Substance: EMTRICITABINE\RILPIVIRINE HYDROCHLORIDE\TENOFOVIR ALAFENAMIDE FUMARATE
     Indication: HIV infection CDC category A
     Dosage: UNK
     Dates: start: 2016
  6. FAMOTIDINE [Concomitant]
     Active Substance: FAMOTIDINE
     Indication: HIV infection CDC category A
     Dosage: 40 MG

REACTIONS (2)
  - Pathogen resistance [Unknown]
  - Product use in unapproved therapeutic environment [Unknown]
